FAERS Safety Report 20165040 (Version 1)
Quarter: 2021Q4

REPORT INFORMATION
  Report Type: Spontaneous
  Country: GR (occurrence: GR)
  Receive Date: 20211209
  Receipt Date: 20211209
  Transmission Date: 20220303
  Serious: Yes (Other)
  Sender: FDA-Public Use
  Company Number: GR-GLAXOSMITHKLINE-GR2021EME249564

PATIENT
  Age: 13 Year
  Sex: Male

DRUGS (1)
  1. ALBUTEROL [Suspect]
     Active Substance: ALBUTEROL
     Indication: Status asthmaticus
     Dosage: HIGH DOSES

REACTIONS (3)
  - Hyperlactacidaemia [Recovered/Resolved]
  - Rhinovirus infection [Unknown]
  - Enterovirus infection [Unknown]
